FAERS Safety Report 16380043 (Version 1)
Quarter: 2019Q2

REPORT INFORMATION
  Report Type: Report from Study
  Country: None (occurrence: US)
  Receive Date: 20190531
  Receipt Date: 20190531
  Transmission Date: 20190711
  Serious: Yes (Other)
  Sender: FDA-Public Use
  Company Number: US-ABBVIE-19K-163-2797550-00

PATIENT
  Age: 61 Year
  Sex: Female

DRUGS (1)
  1. HUMIRA [Suspect]
     Active Substance: ADALIMUMAB
     Indication: RHEUMATOID ARTHRITIS
     Route: 058

REACTIONS (4)
  - Procedural haemorrhage [Recovering/Resolving]
  - Swelling [Recovering/Resolving]
  - Migraine [Unknown]
  - Tooth extraction [Recovering/Resolving]

NARRATIVE: CASE EVENT DATE: 20190515
